FAERS Safety Report 12961028 (Version 2)
Quarter: 2016Q4

REPORT INFORMATION
  Report Type: Spontaneous
  Country: DE (occurrence: DE)
  Receive Date: 20161121
  Receipt Date: 20161229
  Transmission Date: 20170207
  Serious: Yes (Death, Other)
  Sender: FDA-Public Use
  Company Number: DE-JAZZ-2016-DE-022206

PATIENT
  Sex: Male

DRUGS (3)
  1. DEFITELIO [Suspect]
     Active Substance: DEFIBROTIDE SODIUM
     Indication: VENOOCCLUSIVE DISEASE
     Dosage: 10MG/KG, QD
     Dates: start: 20160805, end: 201608
  2. DEFITELIO [Suspect]
     Active Substance: DEFIBROTIDE SODIUM
     Dosage: 25MG/KG, QD
     Dates: start: 20160810
  3. URSOFALK [Concomitant]
     Active Substance: URSODIOL
     Indication: PRODUCT USED FOR UNKNOWN INDICATION
     Dosage: UNK
     Dates: start: 20160805

REACTIONS (2)
  - Death [Fatal]
  - Renal failure [Unknown]

NARRATIVE: CASE EVENT DATE: 2016
